FAERS Safety Report 16550376 (Version 1)
Quarter: 2019Q3

REPORT INFORMATION
  Report Type: Spontaneous
  Country: US (occurrence: US)
  Receive Date: 20190528
  Receipt Date: 20190528
  Transmission Date: 20191004
  Serious: No
  Sender: FDA-Public Use
  Company Number: None

PATIENT
  Age: 62 Year
  Sex: Female

DRUGS (3)
  1. POTASSIUM [Concomitant]
     Active Substance: POTASSIUM
  2. MITOMYCIN INJ 40MG [Suspect]
     Active Substance: MITOMYCIN
     Route: 043
     Dates: start: 201905
  3. LOSARTAN. [Concomitant]
     Active Substance: LOSARTAN

REACTIONS (1)
  - Off label use [None]

NARRATIVE: CASE EVENT DATE: 20190528
